FAERS Safety Report 5886911-9 (Version None)
Quarter: 2008Q3

REPORT INFORMATION
  Report Type: 
  Country: None (occurrence: None)
  Receive Date: 20080917
  Receipt Date: 20080903
  Transmission Date: 20090109
  Serious: Yes (Hospitalization, Other)
  Sender: FDA-Public Use
  Company Number: US-TEVA-176943USA

PATIENT
  Sex: Female

DRUGS (11)
  1. COPAXONE [Suspect]
     Indication: MULTIPLE SCLEROSIS
     Route: 058
  2. ALBUTEROL SPIROS [Concomitant]
  3. VICODIN [Concomitant]
  4. ZOLPIDEM TARTRATE [Concomitant]
  5. SERTRALINE [Concomitant]
  6. INSULIN [Concomitant]
  7. INSULIN GLARGINE [Concomitant]
  8. BACLOFEN [Concomitant]
  9. GABAPENTIN [Concomitant]
  10. NORTRIPTYLINE HCL [Concomitant]
  11. OXYBUTYNIN [Concomitant]

REACTIONS (2)
  - DIABETIC FOOT [None]
  - DIABETIC GANGRENE [None]
